FAERS Safety Report 9152898 (Version 1)
Quarter: 2013Q1

REPORT INFORMATION
  Report Type: Spontaneous
  Country: US (occurrence: US)
  Receive Date: 20130309
  Receipt Date: 20130309
  Transmission Date: 20140127
  Serious: No
  Sender: FDA-Public Use
  Company Number: US-ASTRAZENECA-2013SE13576

PATIENT
  Age: 9 Year
  Sex: Female

DRUGS (4)
  1. PULMICORT RESPULES [Suspect]
     Indication: ASTHMA
     Route: 055
     Dates: start: 2003
  2. CYPROHEPLADINE [Concomitant]
     Indication: CYCLIC VOMITING SYNDROME
     Route: 048
  3. MILK OF MAGNESIA [Concomitant]
     Indication: PRODUCT USED FOR UNKNOWN INDICATION
     Dosage: PRN
     Route: 048
  4. XOPANEX [Concomitant]
     Indication: RESPIRATORY DISORDER
     Dosage: PRN
     Route: 055

REACTIONS (3)
  - Burning sensation [Recovered/Resolved]
  - Dyspnoea [Recovered/Resolved]
  - Off label use [Not Recovered/Not Resolved]
